FAERS Safety Report 20254228 (Version 1)
Quarter: 2021Q4

REPORT INFORMATION
  Report Type: Report from Study
  Country: EG (occurrence: EG)
  Receive Date: 20211230
  Receipt Date: 20211230
  Transmission Date: 20220303
  Serious: Yes (Hospitalization, Other)
  Sender: FDA-Public Use
  Company Number: EG-NOVARTISPH-NVSC2021EG286747

PATIENT
  Age: 71 Year
  Sex: Female

DRUGS (10)
  1. ENTRESTO [Suspect]
     Active Substance: SACUBITRIL\VALSARTAN
     Indication: Cardiac failure
     Dosage: 1 DOSAGE FORM, BID. (50 MG)
     Route: 048
     Dates: start: 202110
  2. SODIUM CARBONATE [Concomitant]
     Active Substance: SODIUM CARBONATE
     Indication: Renal impairment
     Dosage: 1 DOSAGE FORM, TID
     Route: 048
     Dates: start: 2020
  3. SODIUM [Concomitant]
     Active Substance: SODIUM
     Indication: Renal impairment
     Dosage: 2 DOSAGE FORM, TID (SALT)
     Route: 048
     Dates: start: 2020
  4. DOSIN [Concomitant]
     Indication: Hypertension
     Dosage: 4 DOSAGE FORM, QD
     Route: 048
     Dates: start: 2020
  5. ALDOMET [Concomitant]
     Active Substance: METHYLDOPA
     Indication: Hypertension
     Dosage: 2 DOSAGE FORM, BID
     Route: 048
     Dates: start: 2020
  6. AMILO [Concomitant]
     Indication: Hypertension
     Dosage: 1 DOSAGE FORM, QD
     Route: 048
     Dates: start: 2020
  7. ALDACTONE [Concomitant]
     Active Substance: SPIRONOLACTONE
     Indication: Fluid retention
     Dosage: 1 DOSAGE FORM, BID
     Route: 048
     Dates: start: 2020
  8. ATORVASTATIN CALCIUM [Concomitant]
     Active Substance: ATORVASTATIN CALCIUM
     Indication: Prophylaxis
     Dosage: 1 DOSAGE FORM, QD
     Route: 048
     Dates: start: 2020
  9. ASPIRIN [Concomitant]
     Active Substance: ASPIRIN
     Indication: Prophylaxis
     Dosage: 2 DOSAGE FORM, QD (AFTER LUNCH)
     Route: 048
     Dates: start: 2020
  10. INSULIN NOS [Concomitant]
     Active Substance: INSULIN NOS
     Indication: Diabetes mellitus
     Dosage: 1 DOSAGE FORM, BID
     Route: 058
     Dates: start: 2019

REACTIONS (4)
  - Blood sodium decreased [Unknown]
  - Seizure [Unknown]
  - Loss of consciousness [Unknown]
  - Cough [Recovered/Resolved]

NARRATIVE: CASE EVENT DATE: 20211203
